FAERS Safety Report 9962617 (Version 1)
Quarter: 2014Q1

REPORT INFORMATION
  Report Type: Report from Study
  Country: US (occurrence: US)
  Receive Date: 20140305
  Receipt Date: 20140305
  Transmission Date: 20141002
  Serious: No
  Sender: FDA-Public Use
  Company Number: US-ABBVIE-13P-163-1114089-00

PATIENT
  Age: 40 Year
  Sex: Female

DRUGS (5)
  1. HUMIRA PEN [Suspect]
     Indication: PSORIASIS
     Dates: start: 20130701
  2. HUMIRA PFS [Suspect]
     Indication: PSORIASIS
     Dates: start: 201304, end: 201307
  3. ESTRADIOL [Concomitant]
     Indication: HORMONE REPLACEMENT THERAPY
  4. MVI [Concomitant]
     Indication: VITAMIN SUPPLEMENTATION
  5. ZYRTEC [Concomitant]
     Indication: HYPERSENSITIVITY

REACTIONS (1)
  - Injection site pain [Not Recovered/Not Resolved]
